FAERS Safety Report 9632454 (Version 2)
Quarter: 2013Q4

REPORT INFORMATION
  Report Type: Report from Study
  Country: US (occurrence: US)
  Receive Date: 20131018
  Receipt Date: 20131113
  Transmission Date: 20140711
  Serious: Yes (Other)
  Sender: FDA-Public Use
  Company Number: US-US-EMD SERONO, INC.-7243720

PATIENT
  Sex: Female
  Weight: 77 kg

DRUGS (4)
  1. REBIF [Suspect]
     Indication: MULTIPLE SCLEROSIS
     Route: 058
     Dates: start: 20030115
  2. REBIF [Suspect]
     Route: 058
     Dates: start: 2012
  3. ADVIL                              /00109201/ [Concomitant]
     Indication: BACK PAIN
  4. ADVIL                              /00109201/ [Concomitant]
     Indication: PAIN

REACTIONS (7)
  - Type 2 diabetes mellitus [Unknown]
  - Spinal column stenosis [Recovering/Resolving]
  - Skin disorder [Unknown]
  - Thyroid disorder [Unknown]
  - Liver function test abnormal [Recovering/Resolving]
  - Injection site pain [Not Recovered/Not Resolved]
  - Injection site urticaria [Not Recovered/Not Resolved]
